FAERS Safety Report 5109350-7 (Version None)
Quarter: 2006Q3

REPORT INFORMATION
  Report Type: 
  Country: None (occurrence: None)
  Receive Date: 20060920
  Receipt Date: 20060911
  Transmission Date: 20061208
  Serious: Yes (Hospitalization)
  Sender: FDA-Public Use
  Company Number: DE-BRISTOL-MYERS SQUIBB COMPANY-13505045

PATIENT
  Age: 63 Year
  Sex: Male

DRUGS (4)
  1. CISPLATIN [Suspect]
     Indication: PANCREATIC CARCINOMA
  2. FLUOROURACIL [Suspect]
     Indication: PANCREATIC CARCINOMA
     Route: 042
  3. INTERFERON ALPHA [Suspect]
     Indication: PANCREATIC CARCINOMA
     Route: 058
  4. RADIATION THERAPY [Suspect]
     Indication: PANCREATIC CARCINOMA

REACTIONS (5)
  - DEHYDRATION [None]
  - DIARRHOEA [None]
  - HYPOCALCAEMIA [None]
  - HYPOKALAEMIA [None]
  - PARAESTHESIA [None]
